FAERS Safety Report 6015166-X (Version None)
Quarter: 2008Q4

REPORT INFORMATION
  Report Type: 
  Country: None (occurrence: None)
  Receive Date: 20081222
  Receipt Date: 20081211
  Transmission Date: 20090506
  Serious: Yes (Hospitalization)
  Sender: FDA-Public Use
  Company Number: FR-NOVOPROD-282355

PATIENT
  Age: 60 Year
  Sex: Male

DRUGS (8)
  1. NOVOLOG MIX 70/30 [Suspect]
     Indication: TYPE 2 DIABETES MELLITUS
     Dosage: 54 (40+14) IU, QD
     Route: 058
  2. NOVORAPID [Suspect]
     Indication: TYPE 2 DIABETES MELLITUS
     Dosage: 8 IU, QD
     Route: 058
  3. RIFINAH [Concomitant]
     Indication: PULMONARY TUBERCULOSIS
     Dosage: 2 DF, QD
     Route: 048
     Dates: start: 20081020
  4. NORSET [Concomitant]
     Dosage: 15 MG, QD
     Route: 048
     Dates: start: 20081010
  5. TAHOR [Concomitant]
     Dosage: 10 MG, QD
     Route: 048
     Dates: start: 20081010
  6. AMLOD [Concomitant]
     Dosage: 5 MG, QD
     Route: 048
     Dates: start: 20081010
  7. DAFALGAN                           /00020001/ [Concomitant]
     Indication: BONE PAIN
     Dosage: 2 G, QD
     Route: 048
     Dates: start: 20081010
  8. TOPALGIC                           /00599202/ [Concomitant]
     Indication: BONE PAIN
     Dosage: 200 MG, QD
     Route: 048
     Dates: start: 20081020

REACTIONS (6)
  - BLOOD GLUCOSE INCREASED [None]
  - CEREBROVASCULAR ACCIDENT [None]
  - CONVULSION [None]
  - GLASGOW COMA SCALE ABNORMAL [None]
  - HYPOGLYCAEMIA [None]
  - HYPOTHERMIA [None]
